FAERS Safety Report 8241562-6 (Version None)
Quarter: 2012Q1

REPORT INFORMATION
  Report Type: 
  Country: None (occurrence: None)
  Receive Date: 20120328
  Receipt Date: 20120315
  Transmission Date: 20120608
  Serious: Yes (Hospitalization)
  Sender: FDA-Public Use
  Company Number: US-ROCHE-1052887

PATIENT
  Sex: Male
  Weight: 75.7 kg

DRUGS (2)
  1. AVASTIN [Suspect]
     Indication: SARCOMA METASTATIC
  2. VALPROIC ACID [Suspect]
     Indication: SARCOMA METASTATIC

REACTIONS (4)
  - MUSCULAR WEAKNESS [None]
  - BACK PAIN [None]
  - FACIAL PARESIS [None]
  - HYPOAESTHESIA [None]
